FAERS Safety Report 24746092 (Version 1)
Quarter: 2024Q4

REPORT INFORMATION
  Report Type: Spontaneous
  Country: US (occurrence: US)
  Receive Date: 20241218
  Receipt Date: 20241218
  Transmission Date: 20250115
  Serious: Yes (Other)
  Sender: SERVIER
  Company Number: US-SERVIER-S24016494

PATIENT

DRUGS (1)
  1. VORANIGO [Suspect]
     Active Substance: VORASIDENIB
     Indication: Product used for unknown indication
     Dosage: UNK
     Route: 048

REACTIONS (3)
  - Seizure [Unknown]
  - Abnormal behaviour [Unknown]
  - Somnolence [Unknown]

NARRATIVE: CASE EVENT DATE: 20241210
